FAERS Safety Report 7469941-5 (Version None)
Quarter: 2011Q2

REPORT INFORMATION
  Report Type: 
  Country: None (occurrence: None)
  Receive Date: 20110510
  Receipt Date: 20110505
  Transmission Date: 20111010
  Serious: Yes (Other)
  Sender: FDA-Public Use
  Company Number: CA-PFIZER INC-2011084515

PATIENT
  Age: 52 Year
  Sex: Female
  Weight: 64.399 kg

DRUGS (11)
  1. ACETYLSALICYLIC ACID ENTERIC COATED [Concomitant]
     Dosage: UNK
  2. PANTOLOC ^BYK MADAUS^ [Concomitant]
     Dosage: UNK
  3. VARENICLINE TARTRATE [Suspect]
     Dosage: 0.5 MG, 2X/DAY
  4. LIPITOR [Concomitant]
     Dosage: 20 MG, UNK
  5. MAXERAN [Concomitant]
     Dosage: 10 MG, UNK
  6. VARENICLINE TARTRATE [Suspect]
     Dosage: 0.5 MG, 1X/DAY
  7. COVERSYL [Concomitant]
     Dosage: 8 MG, UNK
  8. VARENICLINE TARTRATE [Suspect]
     Dosage: 1 MG, 2X/DAY
  9. METFORMIN [Concomitant]
     Dosage: UNK
  10. TRIAMTERENE AND HYDROCHLOROTHIAZID ^HARRIS^ [Concomitant]
     Dosage: UNK
  11. ADALAT CC [Concomitant]
     Dosage: 20 MG, UNK

REACTIONS (2)
  - BLOOD GLUCOSE INCREASED [None]
  - MALAISE [None]
